FAERS Safety Report 9783749 (Version 1)
Quarter: 2013Q4

REPORT INFORMATION
  Report Type: Spontaneous
  Country: US (occurrence: None)
  Receive Date: 20131223
  Receipt Date: 20131223
  Transmission Date: 20140711
  Serious: Yes (Other)
  Sender: FDA-Public Use
  Company Number: EUS-2011-00747

PATIENT
  Age: 16 Year
  Sex: Male

DRUGS (6)
  1. ERWINASE (ASPARAGINASE) [Suspect]
     Indication: ACUTE LYMPHOCYTIC LEUKAEMIA
     Dosage: (42750 IU, SUBCUTANEOUS)
     Route: 058
     Dates: start: 20111111, end: 20111114
  2. DEXAMETHASONE (DEXAMETHASONE) [Concomitant]
  3. METHOTREXATE (METHOTREXATE) [Concomitant]
  4. VINCRISTINE (VINCRISTINE) [Concomitant]
  5. BACTRIM (BACTRIM) (SULFAMETHOXAZOLE, TRIMETHOPRIM) [Concomitant]
  6. MIRALAX [Concomitant]

REACTIONS (4)
  - Hypersensitivity [None]
  - Hyperglycaemia [None]
  - Pancreatitis [None]
  - Necrosis [None]
